FAERS Safety Report 18396159 (Version 1)
Quarter: 2020Q4

REPORT INFORMATION
  Report Type: Spontaneous
  Country: AU (occurrence: AU)
  Receive Date: 20201019
  Receipt Date: 20201019
  Transmission Date: 20210114
  Serious: Yes (Hospitalization, Other)
  Sender: FDA-Public Use
  Company Number: AU-BRISTOL-MYERS SQUIBB COMPANY-BMS-2020-084647

PATIENT
  Age: 88 Year
  Sex: Male

DRUGS (1)
  1. OPDIVO [Suspect]
     Active Substance: NIVOLUMAB
     Indication: RENAL CANCER
     Dosage: UNK
     Route: 042
     Dates: start: 20200213, end: 20200513

REACTIONS (4)
  - Confusional state [Unknown]
  - Diabetic ketoacidosis [Unknown]
  - Urinary tract infection [Unknown]
  - Autoimmune hepatitis [Not Recovered/Not Resolved]
